FAERS Safety Report 6395730-9 (Version None)
Quarter: 2009Q4

REPORT INFORMATION
  Report Type: 
  Country: None (occurrence: None)
  Receive Date: 20091009
  Receipt Date: 20091002
  Transmission Date: 20100525
  Serious: Yes (Other)
  Sender: FDA-Public Use
  Company Number: US-TYCO HEALTHCARE/MALLINCKRODT-T200901843

PATIENT
  Age: 40 Year
  Sex: Male

DRUGS (4)
  1. LORCET-HD [Suspect]
     Indication: DRUG ABUSE
     Route: 045
  2. TYLOX                              /00446701/ [Suspect]
     Indication: DRUG ABUSE
     Dosage: UNK
     Route: 045
  3. PERCOCET [Suspect]
     Indication: DRUG ABUSE
     Route: 045
  4. VICODIN [Suspect]
     Indication: DRUG ABUSE
     Route: 045

REACTIONS (3)
  - DRUG ABUSE [None]
  - INCORRECT ROUTE OF DRUG ADMINISTRATION [None]
  - INTENTIONAL OVERDOSE [None]
